FAERS Safety Report 10391212 (Version 3)
Quarter: 2014Q3

REPORT INFORMATION
  Report Type: Spontaneous
  Country: US (occurrence: US)
  Receive Date: 20140818
  Receipt Date: 20140918
  Transmission Date: 20150326
  Serious: No
  Sender: FDA-Public Use
  Company Number: US-PFIZER INC-2014229480

PATIENT
  Age: 38 Year
  Sex: Female
  Weight: 81.63 kg

DRUGS (1)
  1. CHANTIX [Suspect]
     Active Substance: VARENICLINE TARTRATE
     Indication: SMOKING CESSATION THERAPY
     Dosage: TWO PILLS A DAY
     Dates: start: 2012

REACTIONS (1)
  - Abnormal dreams [Recovered/Resolved]
